FAERS Safety Report 9258308 (Version 1)
Quarter: 2013Q2

REPORT INFORMATION
  Report Type: Spontaneous
  Country: US (occurrence: US)
  Receive Date: 20130426
  Receipt Date: 20130426
  Transmission Date: 20140414
  Serious: Yes (Other)
  Sender: FDA-Public Use
  Company Number: US-PFIZER INC-2013130341

PATIENT
  Age: 50 Year
  Sex: Female
  Weight: 74.83 kg

DRUGS (5)
  1. LYRICA [Suspect]
     Indication: CONVULSION
     Dosage: 150 MG, 2X/DAY
     Route: 048
  2. TRILEPTAL [Concomitant]
     Indication: CONVULSION
     Dosage: 150 MG, 2X/DAY
     Route: 048
  3. DILANTIN [Concomitant]
     Indication: CONVULSION
     Dosage: 300 MG, 1X/DAY
  4. DILANTIN [Concomitant]
     Dosage: 50 MG, 1X/DAY
  5. SERTRALINE [Concomitant]
     Dosage: 50 MG, 1X/DAY

REACTIONS (7)
  - Uterine disorder [Unknown]
  - Arthralgia [Unknown]
  - Weight increased [Unknown]
  - Myalgia [Unknown]
  - Gait disturbance [Unknown]
  - Fall [Unknown]
  - Dizziness [Unknown]
